FAERS Safety Report 16093184 (Version 3)
Quarter: 2021Q2

REPORT INFORMATION
  Report Type: Report from Study
  Country: CA (occurrence: CA)
  Receive Date: 20190320
  Receipt Date: 20210622
  Transmission Date: 20210716
  Serious: Yes (Hospitalization, Other)
  Sender: FDA-Public Use
  Company Number: CA-BIOGEN-2016BI00336511

PATIENT
  Age: 53 Year
  Sex: Male

DRUGS (6)
  1. TYSABRI [Suspect]
     Active Substance: NATALIZUMAB
     Indication: MULTIPLE SCLEROSIS
     Dosage: INFUSED OVER 1 HOUR
     Route: 042
     Dates: start: 20141104, end: 20150929
  2. TYSABRI [Suspect]
     Active Substance: NATALIZUMAB
     Dosage: 300MG I.V Q4WEEKS
     Route: 042
     Dates: start: 20141104
  3. ENTYVIO [Suspect]
     Active Substance: VEDOLIZUMAB
     Indication: PRODUCT USED FOR UNKNOWN INDICATION
     Route: 065
  4. TYSABRI [Suspect]
     Active Substance: NATALIZUMAB
     Dosage: INFUSION FOR OVER 1 HOUR
     Route: 042
     Dates: start: 20141104
  5. TYSABRI [Suspect]
     Active Substance: NATALIZUMAB
     Dosage: INFUSED OVER 1 HOUR
     Route: 042
     Dates: start: 20160614, end: 20170201
  6. TYSABRI [Suspect]
     Active Substance: NATALIZUMAB
     Dosage: INFUSION FOR OVER 1 HOUR
     Route: 042
     Dates: start: 20141104

REACTIONS (17)
  - Crohn^s disease [Recovered/Resolved]
  - Blood pressure decreased [Unknown]
  - Confusional state [Unknown]
  - Gastrointestinal sounds abnormal [Unknown]
  - Memory impairment [Unknown]
  - Feeling abnormal [Unknown]
  - Pain [Unknown]
  - Paralysis [Unknown]
  - Fatigue [Unknown]
  - Abdominal pain upper [Unknown]
  - Urinary incontinence [Unknown]
  - Limb injury [Unknown]
  - Cardiac arrest [Unknown]
  - Coma [Unknown]
  - Daydreaming [Unknown]
  - Crohn^s disease [Unknown]
  - Constipation [Recovered/Resolved]

NARRATIVE: CASE EVENT DATE: 201612
